FAERS Safety Report 5284233-0 (Version None)
Quarter: 2007Q2

REPORT INFORMATION
  Report Type: 
  Country: None (occurrence: None)
  Receive Date: 20070403
  Receipt Date: 20070329
  Transmission Date: 20071010
  Serious: Yes (Other)
  Sender: FDA-Public Use
  Company Number: US-BAYER-200711045BWH

PATIENT
  Age: 59 Year
  Sex: Male

DRUGS (18)
  1. NEXAVAR [Suspect]
     Indication: RENAL CELL CARCINOMA STAGE UNSPECIFIED
     Dosage: TOTAL DAILY DOSE: 800 MG  UNIT DOSE: 200 MG
     Route: 048
     Dates: start: 20060301
  2. AMBIEN [Concomitant]
  3. COUMADIN [Concomitant]
  4. CALCITRIOL [Concomitant]
  5. PHOSLO [Concomitant]
  6. STARLIX [Concomitant]
  7. METANX [Concomitant]
  8. SULFAMETHOXAZOLE [Concomitant]
  9. TERAZOSIN HCL [Concomitant]
  10. METOCLOPRAMIDE [Concomitant]
  11. CALCIUM CARBONATE [Concomitant]
  12. OXYCODONE HCL [Concomitant]
  13. CILOSTAZOL [Concomitant]
  14. COLCHICINE [Concomitant]
  15. FUROSEMIDE [Concomitant]
  16. CLONIDINE [Concomitant]
  17. TOPROL-XL [Concomitant]
  18. CLORAZEPATE [Concomitant]

REACTIONS (2)
  - GANGRENE [None]
  - IMPAIRED HEALING [None]
